FAERS Safety Report 16334278 (Version 1)
Quarter: 2019Q2

REPORT INFORMATION
  Report Type: Spontaneous
  Country: CA (occurrence: CA)
  Receive Date: 20190520
  Receipt Date: 20190520
  Transmission Date: 20190711
  Serious: Yes (Other)
  Sender: FDA-Public Use
  Company Number: CA-PFIZER INC-2019198077

PATIENT
  Age: 73 Year
  Sex: Male

DRUGS (4)
  1. VANCOMYCIN HCL [Suspect]
     Active Substance: VANCOMYCIN HYDROCHLORIDE
     Indication: CLOSTRIDIAL SEPSIS
     Dosage: 125 MG, 4X/DAY FOR 14 DAYS
     Dates: start: 201901, end: 201902
  2. PREDNISONE. [Concomitant]
     Active Substance: PREDNISONE
     Indication: COLITIS ULCERATIVE
     Dosage: 30 MG,  Q UNK
     Dates: start: 2019
  3. VANCOMYCIN HCL [Suspect]
     Active Substance: VANCOMYCIN HYDROCHLORIDE
     Indication: CLOSTRIDIUM DIFFICILE COLITIS
     Dosage: UNK
     Dates: end: 2019
  4. ENTYVIO [Concomitant]
     Active Substance: VEDOLIZUMAB
     Indication: COLITIS ULCERATIVE
     Dosage: UNK
     Dates: start: 2019

REACTIONS (3)
  - Malignant melanoma [Unknown]
  - Therapeutic product effect incomplete [Unknown]
  - Clostridium difficile infection [Recovered/Resolved]
